FAERS Safety Report 4556712-2 (Version None)
Quarter: 2005Q1

REPORT INFORMATION
  Report Type: 
  Country: None (occurrence: None)
  Receive Date: 20050120
  Receipt Date: 20041201
  Transmission Date: 20050727
  Serious: Yes (Life-Threatening, Hospitalization)
  Sender: FDA-Public Use
  Company Number: PHRM2004DZ03509

PATIENT
  Age: 26 Year
  Sex: Male
  Weight: 62 kg

DRUGS (1)
  1. FORADIL [Suspect]
     Indication: ASTHMA
     Dosage: ONCE/SINGLE

REACTIONS (4)
  - BRADYCARDIA [None]
  - CONVULSION [None]
  - HYPERHIDROSIS [None]
  - SHOCK HYPOGLYCAEMIC [None]
